FAERS Safety Report 10244832 (Version 2)
Quarter: 2014Q2

REPORT INFORMATION
  Report Type: Spontaneous
  Country: CN (occurrence: CN)
  Receive Date: 20140618
  Receipt Date: 20140618
  Transmission Date: 20141212
  Serious: Yes (Hospitalization, Other)
  Sender: FDA-Public Use
  Company Number: CN-BAYER-2014-010532

PATIENT
  Age: 34 Year
  Sex: Female
  Weight: 62 kg

DRUGS (1)
  1. YASMIN [Suspect]
     Indication: CONTRACEPTION
     Dosage: 1 DF, QD
     Route: 048
     Dates: start: 20130910, end: 20130915

REACTIONS (13)
  - Intracranial venous sinus thrombosis [Recovering/Resolving]
  - Haemorrhage intracranial [None]
  - Immune thrombocytopenic purpura [None]
  - Coagulopathy [None]
  - Blood fibrinogen decreased [None]
  - Hyperhomocysteinaemia [None]
  - Hepatic function abnormal [Recovered/Resolved]
  - Electrolyte imbalance [Recovered/Resolved]
  - Hepatic steatosis [None]
  - Deep vein thrombosis [None]
  - Folate deficiency [None]
  - Mastoiditis [None]
  - Sinusitis [None]
